FAERS Safety Report 25479449 (Version 1)
Quarter: 2025Q2

REPORT INFORMATION
  Report Type: Spontaneous
  Country: US (occurrence: US)
  Receive Date: 20250625
  Receipt Date: 20250625
  Transmission Date: 20250717
  Serious: No
  Sender: SANOFI AVENTIS
  Company Number: US-SA-2025SA176751

PATIENT
  Age: 82 Year
  Sex: Female

DRUGS (1)
  1. CAPRELSA [Suspect]
     Active Substance: VANDETANIB
     Indication: Neuroendocrine tumour
     Dosage: 100 MG, QD
     Route: 048
     Dates: start: 20220329

REACTIONS (1)
  - Product dose omission in error [Unknown]
